FAERS Safety Report 5373711-1 (Version None)
Quarter: 2007Q2

REPORT INFORMATION
  Report Type: 
  Country: None (occurrence: None)
  Receive Date: 20070620
  Receipt Date: 20070601
  Transmission Date: 20071010
  Serious: Yes (Other)
  Sender: FDA-Public Use
  Company Number: 07C162

PATIENT
  Age: 20 Year
  Sex: Male
  Weight: 83.9154 kg

DRUGS (2)
  1. METRONIDAZOLE [Suspect]
     Indication: ROSACEA
     Dosage: TOPICAL; 2 X A DAY; TOPICAL 1 X A DAY
     Route: 061
     Dates: start: 20070416, end: 20070504
  2. METRONIDAZOLE [Suspect]
     Indication: ROSACEA
     Dosage: TOPICAL; 2 X A DAY; TOPICAL 1 X A DAY
     Route: 061
     Dates: start: 20070528

REACTIONS (1)
  - HYPOAESTHESIA [None]
